FAERS Safety Report 6871540-0 (Version None)
Quarter: 2010Q3

REPORT INFORMATION
  Report Type: 
  Country: None (occurrence: None)
  Receive Date: 20100723
  Receipt Date: 20100712
  Transmission Date: 20110219
  Serious: Yes (Other)
  Sender: FDA-Public Use
  Company Number: PHHY2010US45885

PATIENT
  Sex: Male

DRUGS (9)
  1. AFINITOR [Suspect]
     Dosage: UNK
  2. OMEPRAZOLE [Concomitant]
     Dosage: 1X/DAY
  3. OMEPRAZOLE [Concomitant]
     Dosage: 2X/DAY
  4. LISINOPRIL [Concomitant]
     Dosage: 1X / DAY
  5. METOPROLOL SUCCINATE [Concomitant]
     Dosage: 1X/DAY
  6. METOPROLOL SUCCINATE [Concomitant]
     Dosage: 2X/DAY
  7. ASPIRIN [Concomitant]
     Dosage: 1X/DAY
  8. SIMVASTATIN [Concomitant]
     Dosage: 1X/DAY
  9. WARFARIN SODIUM [Concomitant]
     Dosage: 1 X / DAY

REACTIONS (5)
  - ABDOMINAL DISCOMFORT [None]
  - ATRIAL FIBRILLATION [None]
  - DYSGEUSIA [None]
  - JOINT SWELLING [None]
  - THROMBOSIS [None]
